FAERS Safety Report 7386654-9 (Version None)
Quarter: 2011Q1

REPORT INFORMATION
  Report Type: 
  Country: None (occurrence: None)
  Receive Date: 20110331
  Receipt Date: 20110329
  Transmission Date: 20110831
  Serious: Yes (Other)
  Sender: FDA-Public Use
  Company Number: IT-ABBOTT-11P-083-0709288-00

PATIENT
  Age: 38 Year
  Sex: Female

DRUGS (8)
  1. ESOMEPRAZOLE [Concomitant]
     Indication: PRODUCT USED FOR UNKNOWN INDICATION
  2. KEPPRA [Concomitant]
     Indication: PRODUCT USED FOR UNKNOWN INDICATION
  3. ROCEPHIN [Concomitant]
     Indication: PRODUCT USED FOR UNKNOWN INDICATION
  4. PORTOLAC [Concomitant]
     Indication: PRODUCT USED FOR UNKNOWN INDICATION
  5. TOPAMAX [Concomitant]
     Indication: PRODUCT USED FOR UNKNOWN INDICATION
  6. DEPAKENE [Concomitant]
     Indication: PRODUCT USED FOR UNKNOWN INDICATION
  7. DEPAKIN INJECTION [Suspect]
     Indication: EPILEPSY
     Dosage: 480MG TOTAL
     Route: 041
     Dates: start: 20110223, end: 20110223
  8. PERFALGAN [Concomitant]
     Indication: PRODUCT USED FOR UNKNOWN INDICATION

REACTIONS (5)
  - INCORRECT DRUG ADMINISTRATION RATE [None]
  - ANTICONVULSANT DRUG LEVEL INCREASED [None]
  - AMMONIA INCREASED [None]
  - DRUG LEVEL ABOVE THERAPEUTIC [None]
  - DRUG ADMINISTRATION ERROR [None]
